FAERS Safety Report 10085917 (Version 1)
Quarter: 2014Q2

REPORT INFORMATION
  Report Type: Spontaneous
  Country: US (occurrence: US)
  Receive Date: 20140418
  Receipt Date: 20140418
  Transmission Date: 20141212
  Serious: No
  Sender: FDA-Public Use
  Company Number: US-PFIZER INC-2014107186

PATIENT
  Age: 75 Year
  Sex: Male
  Weight: 102.04 kg

DRUGS (2)
  1. TIKOSYN [Suspect]
     Indication: ATRIAL FIBRILLATION
     Dosage: UNK, 2X/DAY
     Dates: start: 2013
  2. WARFARIN [Concomitant]
     Indication: ANTICOAGULANT THERAPY
     Dosage: 7.5 MG, DAILY

REACTIONS (5)
  - Diarrhoea [Unknown]
  - Emotional disorder [Unknown]
  - Poor quality sleep [Not Recovered/Not Resolved]
  - Rash [Unknown]
  - Stress [Not Recovered/Not Resolved]
